FAERS Safety Report 18980075 (Version 2)
Quarter: 2021Q3

REPORT INFORMATION
  Report Type: Spontaneous
  Country: US (occurrence: US)
  Receive Date: 20210308
  Receipt Date: 20210909
  Transmission Date: 20211014
  Serious: Yes (Other)
  Sender: FDA-Public Use
  Company Number: US-GILEAD-2021-0519282

PATIENT
  Age: 52 Year
  Sex: Male
  Weight: 74.83 kg

DRUGS (54)
  1. COMBIVIR [Concomitant]
     Active Substance: LAMIVUDINE\ZIDOVUDINE
  2. FLUTICASONE. [Concomitant]
     Active Substance: FLUTICASONE
  3. GAVILYTE G [Concomitant]
     Active Substance: POLYETHYLENE GLYCOL 3350\POTASSIUM CHLORIDE\SODIUM BICARBONATE\SODIUM CHLORIDE\SODIUM SULFATE
  4. METHYLPREDNISOLONE. [Concomitant]
     Active Substance: METHYLPREDNISOLONE
  5. NICODERM CQ [Concomitant]
     Active Substance: NICOTINE
  6. SODIUM BICARBONATE. [Concomitant]
     Active Substance: SODIUM BICARBONATE
  7. EDURANT [Concomitant]
     Active Substance: RILPIVIRINE HYDROCHLORIDE
  8. ALFUZOSIN [Concomitant]
     Active Substance: ALFUZOSIN
  9. AMPICILLIN [Concomitant]
     Active Substance: AMPICILLIN
  10. DETROL [Concomitant]
     Active Substance: TOLTERODINE TARTRATE
  11. METOCLOPRAMIDE. [Concomitant]
     Active Substance: METOCLOPRAMIDE
  12. UROXATRAL [Concomitant]
     Active Substance: ALFUZOSIN HYDROCHLORIDE
  13. ZIAGEN [Concomitant]
     Active Substance: ABACAVIR SULFATE
  14. DRONABINOL. [Concomitant]
     Active Substance: DRONABINOL
  15. MEGESTROL [Concomitant]
     Active Substance: MEGESTROL
  16. SULFAMETHOXAZOLE [Concomitant]
     Active Substance: SULFAMETHOXAZOLE
  17. EPIVIR [Concomitant]
     Active Substance: LAMIVUDINE
  18. CLOPIDOGREL [Concomitant]
     Active Substance: CLOPIDOGREL BISULFATE
  19. EZETIMIBE. [Concomitant]
     Active Substance: EZETIMIBE
  20. FINASTERIDE. [Concomitant]
     Active Substance: FINASTERIDE
  21. K PHOS NEUTRAL [Concomitant]
     Active Substance: POTASSIUM PHOSPHATE, MONOBASIC\SODIUM PHOSPHATE, DIBASIC, ANHYDROUS\SODIUM PHOSPHATE, MONOBASIC, MONOHYDRATE
  22. PLAVIX [Concomitant]
     Active Substance: CLOPIDOGREL BISULFATE
  23. PRAVASTATIN. [Concomitant]
     Active Substance: PRAVASTATIN
  24. TRILIPIX [Concomitant]
     Active Substance: FENOFIBRIC ACID
  25. FENTANYL. [Concomitant]
     Active Substance: FENTANYL
  26. GOLYTELY [Concomitant]
     Active Substance: POLYETHYLENE GLYCOL 3350\POTASSIUM CHLORIDE\SODIUM BICARBONATE\SODIUM CHLORIDE\SODIUM SULFATE
  27. CLINDAMYCIN. [Concomitant]
     Active Substance: CLINDAMYCIN
  28. FORMALDEHYDE SOLUTION [Concomitant]
     Active Substance: FORMALDEHYDE
  29. TROSPIUM [Concomitant]
     Active Substance: TROSPIUM
  30. ZETIA [Concomitant]
     Active Substance: EZETIMIBE
  31. MIDAZOLAM. [Concomitant]
     Active Substance: MIDAZOLAM
  32. ONDANSETRON [Concomitant]
     Active Substance: ONDANSETRON
  33. ASPIRIN [ACETYLSALICYLIC ACID] [Concomitant]
     Active Substance: ASPIRIN
  34. EPZICOM [Concomitant]
     Active Substance: ABACAVIR SULFATE\LAMIVUDINE
  35. CARVEDILOL. [Concomitant]
     Active Substance: CARVEDILOL
  36. CELEBREX [Concomitant]
     Active Substance: CELECOXIB
  37. CEPHALEXIN [CEFALEXIN] [Concomitant]
     Active Substance: CEPHALEXIN
  38. FERROUS [IRON] [Concomitant]
     Active Substance: IRON
  39. NICOTINE. [Concomitant]
     Active Substance: NICOTINE
  40. VENTOLIN [Concomitant]
     Active Substance: ALBUTEROL SULFATE
  41. VIAGRA [Concomitant]
     Active Substance: SILDENAFIL CITRATE
  42. DEXAMETHASONE. [Concomitant]
     Active Substance: DEXAMETHASONE
  43. CALCITRIOL. [Concomitant]
     Active Substance: CALCITRIOL
  44. ATRIPLA [Suspect]
     Active Substance: EFAVIRENZ\EMTRICITABINE\TENOFOVIR DISOPROXIL FUMARATE
     Indication: HIV INFECTION
     Dosage: UNK
     Route: 048
     Dates: start: 20090210, end: 20130209
  45. SUSTIVA [Concomitant]
     Active Substance: EFAVIRENZ
  46. CHANTIX [Concomitant]
     Active Substance: VARENICLINE TARTRATE
  47. LISINOPRIL. [Concomitant]
     Active Substance: LISINOPRIL
  48. VITAMIN D NOS [Concomitant]
     Active Substance: VITAMIN D NOS
  49. CEFAZOLIN [Concomitant]
     Active Substance: CEFAZOLIN
  50. POTASSIUM CHLORIDE. [Concomitant]
     Active Substance: POTASSIUM CHLORIDE
  51. MAGNESIUM [Concomitant]
     Active Substance: MAGNESIUM
  52. ABACAVIR. [Concomitant]
     Active Substance: ABACAVIR
  53. AZITHROMYCIN ANHYDROUS. [Concomitant]
     Active Substance: AZITHROMYCIN ANHYDROUS
  54. CIALIS [Concomitant]
     Active Substance: TADALAFIL

REACTIONS (11)
  - Chronic kidney disease [Not Recovered/Not Resolved]
  - Anxiety [Not Recovered/Not Resolved]
  - Renal impairment [Not Recovered/Not Resolved]
  - Osteopenia [Not Recovered/Not Resolved]
  - Renal disorder [Unknown]
  - Bone density decreased [Unknown]
  - Osteoporosis [Not Recovered/Not Resolved]
  - Arteriosclerosis coronary artery [Not Recovered/Not Resolved]
  - Anhedonia [Not Recovered/Not Resolved]
  - Pain [Not Recovered/Not Resolved]
  - Emotional distress [Not Recovered/Not Resolved]

NARRATIVE: CASE EVENT DATE: 201010
